FAERS Safety Report 16023520 (Version 1)
Quarter: 2019Q1

REPORT INFORMATION
  Report Type: Spontaneous
  Country: JP (occurrence: JP)
  Receive Date: 20190301
  Receipt Date: 20190301
  Transmission Date: 20190418
  Serious: Yes (Other)
  Sender: FDA-Public Use
  Company Number: JP-TERSERA THERAPEUTICS LLC-2019TRS000064

PATIENT

DRUGS (2)
  1. ZOLADEX [Suspect]
     Active Substance: GOSERELIN ACETATE
     Indication: PROSTATE CANCER
     Dosage: 3.6 MILLIGRAM, Q4H (EACH 4 HR)
     Route: 058
  2. ZOLADEX [Suspect]
     Active Substance: GOSERELIN ACETATE
     Dosage: 3.6 MILLIGRAM, Q4H (EACH 4 HR)
     Route: 058

REACTIONS (1)
  - Myocarditis [Unknown]
